FAERS Safety Report 7946928-7 (Version None)
Quarter: 2011Q4

REPORT INFORMATION
  Report Type: 
  Country: None (occurrence: None)
  Receive Date: 20111129
  Receipt Date: 20111116
  Transmission Date: 20120403
  Serious: Yes (Hospitalization, Disabling, Other)
  Sender: FDA-Public Use
  Company Number: CA-ASTRAZENECA-2011SE62178

PATIENT
  Sex: Male
  Weight: 2.6 kg

DRUGS (12)
  1. SEROQUEL [Suspect]
     Indication: PSYCHOTIC DISORDER
     Route: 064
  2. SEROQUEL [Suspect]
     Route: 064
  3. NORTRIPTYLINE HCL [Suspect]
     Route: 064
  4. BENZTROPINE MESYLATE [Suspect]
     Dosage: 0.5 QHS
     Route: 064
  5. GABAPENTIN [Suspect]
     Route: 064
  6. ZOPLICONE [Suspect]
     Dosage: 7.5 HS
     Route: 064
  7. ESCITALOPRAM [Suspect]
     Route: 064
  8. GABAPENTIN [Suspect]
     Route: 064
  9. METHADONE HYDROCHLORIDE [Suspect]
     Route: 064
  10. BENZTROPINE MESYLATE [Suspect]
     Route: 064
  11. METHADONE HYDROCHLORIDE [Suspect]
     Route: 064
  12. RABEPRAZOLE SODIUM [Suspect]
     Route: 064

REACTIONS (5)
  - DIARRHOEA [None]
  - TRISMUS [None]
  - POOR QUALITY SLEEP [None]
  - HYPERTONIA [None]
  - EXTRAPYRAMIDAL DISORDER [None]
